FAERS Safety Report 23976165 (Version 2)
Quarter: 2024Q3

REPORT INFORMATION
  Report Type: Spontaneous
  Country: CA (occurrence: CA)
  Receive Date: 20240614
  Receipt Date: 20240717
  Transmission Date: 20241017
  Serious: Yes (Other)
  Sender: PFIZER
  Company Number: CA-PFIZER INC-202400192336

PATIENT
  Age: 66 Year
  Sex: Female
  Weight: 74.8 kg

DRUGS (19)
  1. SULFASALAZINE [Suspect]
     Active Substance: SULFASALAZINE
     Dosage: 1 DF
     Route: 065
     Dates: start: 2020
  2. SULFASALAZINE [Suspect]
     Active Substance: SULFASALAZINE
     Dosage: 1 G, 2X/DAY
     Route: 048
     Dates: start: 20200527, end: 2021
  3. LEFLUNOMIDE [Suspect]
     Active Substance: LEFLUNOMIDE
     Dosage: UNK
     Dates: start: 2019
  4. LEFLUNOMIDE [Suspect]
     Active Substance: LEFLUNOMIDE
     Dosage: UNK
     Dates: start: 2020
  5. LEFLUNOMIDE [Suspect]
     Active Substance: LEFLUNOMIDE
     Dosage: 20 MG, DAILY (OFF SINCE THE MIDDLE OF AUGUST)
     Route: 048
  6. LEFLUNOMIDE [Suspect]
     Active Substance: LEFLUNOMIDE
     Dosage: 10 MG, DAILY
     Route: 048
     Dates: start: 20220923, end: 20221117
  7. ENTRESTO [Concomitant]
     Active Substance: SACUBITRIL\VALSARTAN
     Dosage: UNK (49-51 MG PER TABLET)
  8. FOLVITE [Concomitant]
     Active Substance: FOLIC ACID
     Dosage: 5 MG
  9. LIPITOR [Concomitant]
     Active Substance: ATORVASTATIN CALCIUM
     Dosage: 10 MG
  10. METHOTREXATE [Concomitant]
     Active Substance: METHOTREXATE
     Dosage: UNK
     Dates: start: 2014
  11. METHOTREXATE [Concomitant]
     Active Substance: METHOTREXATE
     Dosage: 2.5 MG
  12. METHOTREXATE [Concomitant]
     Active Substance: METHOTREXATE
     Dosage: 10 MG, WEEKLY
     Route: 048
     Dates: start: 20220406
  13. METHOTREXATE [Concomitant]
     Active Substance: METHOTREXATE
     Dosage: UNK, WEEKLY (3 TABS PER WEEK))
     Route: 048
     Dates: start: 2022, end: 2022
  14. METHOTREXATE [Concomitant]
     Active Substance: METHOTREXATE
     Dosage: 7.5 MG (1DF), WEEKLY (STILL ON IT)
     Route: 048
     Dates: start: 2022
  15. BISOPROLOL FUMARATE [Concomitant]
     Active Substance: BISOPROLOL FUMARATE
     Dosage: 5 MG
  16. VITAMINS NOS [Concomitant]
     Active Substance: VITAMINS
     Dosage: UNK
     Route: 048
  17. NEM [Concomitant]
     Dosage: 500 MG
  18. POLYRIDE FE [Concomitant]
     Dosage: 150 MG
  19. RITUXIMAB [Concomitant]
     Active Substance: RITUXIMAB
     Dosage: UNK (10 MG/ML)

REACTIONS (4)
  - Non-Hodgkin^s lymphoma [Recovered/Resolved]
  - Renal impairment [Unknown]
  - Neutropenia [Unknown]
  - Cardiomyopathy [Unknown]

NARRATIVE: CASE EVENT DATE: 20200101
